FAERS Safety Report 4640275-7 (Version None)
Quarter: 2005Q2

REPORT INFORMATION
  Report Type: 
  Country: None (occurrence: None)
  Receive Date: 20050420
  Receipt Date: 20050413
  Transmission Date: 20051028
  Serious: Yes (Other)
  Sender: FDA-Public Use
  Company Number: 401331

PATIENT
  Age: 70 Year
  Sex: Male

DRUGS (2)
  1. DILATREND [Suspect]
     Indication: HYPERTENSION
     Dosage: 6.5MG PER DAY
     Route: 065
     Dates: start: 20041001, end: 20050201
  2. SIMVASTATIN [Concomitant]
     Indication: DRUG USE FOR UNKNOWN INDICATION
     Route: 065
     Dates: start: 20041001, end: 20050201

REACTIONS (1)
  - PSORIASIS [None]
